FAERS Safety Report 14974438 (Version 1)
Quarter: 2018Q2

REPORT INFORMATION
  Report Type: Spontaneous
  Country: FR (occurrence: FR)
  Receive Date: 20180605
  Receipt Date: 20180605
  Transmission Date: 20180711
  Serious: Yes (Death)
  Sender: FDA-Public Use
  Company Number: FR-TEVA-2018-FR-901743

PATIENT
  Sex: Male

DRUGS (5)
  1. VENLAFAXINE [Suspect]
     Active Substance: VENLAFAXINE HYDROCHLORIDE
     Dosage: NOT INFORMED
     Route: 048
  2. PARACETAMOL [Suspect]
     Active Substance: ACETAMINOPHEN
     Dosage: NOT INFORMED
     Route: 048
  3. ALCOHOL. [Suspect]
     Active Substance: ALCOHOL
     Dosage: NOT INFORMED
     Route: 048
  4. HEROIN [Suspect]
     Active Substance: DIAMORPHINE
     Dosage: NOT INFORMED
     Route: 042
  5. DIAZEPAM. [Suspect]
     Active Substance: DIAZEPAM
     Dosage: NOT INFORMED
     Route: 048

REACTIONS (5)
  - Ex-drug abuser [Fatal]
  - Asphyxia [Fatal]
  - Respiratory depression [Fatal]
  - Drug abuse [Fatal]
  - Drug dependence [Fatal]

NARRATIVE: CASE EVENT DATE: 2017
